FAERS Safety Report 4642777-6 (Version None)
Quarter: 2005Q2

REPORT INFORMATION
  Report Type: 
  Country: None (occurrence: None)
  Receive Date: 20050422
  Receipt Date: 20050415
  Transmission Date: 20051028
  Serious: Yes (Hospitalization)
  Sender: FDA-Public Use
  Company Number: US-BRISTOL-MYERS SQUIBB COMPANY-12935524

PATIENT
  Age: 65 Year
  Sex: Female
  Weight: 77 kg

DRUGS (9)
  1. CETUXIMAB [Suspect]
     Indication: PANCREATIC CARCINOMA
     Dosage: LOADING DOSE 400 MG/M2 IV 24-MAR-2005 (CYCLE 1 DAY 1); STARTING WK. 2- 250 MG/M2 IV DAYS 1,8,15,22.
     Route: 042
     Dates: start: 20050324, end: 20050324
  2. GEMCITABINE HCL [Suspect]
     Indication: PANCREATIC CARCINOMA
     Dosage: 1ST AND MOST RECENT GEMCITABINE INFUSION ADMINISTERED ON 24-MAR-2005 (DAY 1 CYCLE 1) 1000 MG/M2.
     Route: 042
     Dates: start: 20050324, end: 20050324
  3. AVAPRO [Suspect]
     Dosage: AVAPRO 300 MG DAILY.
  4. ATENOLOL [Suspect]
     Dosage: ATENOLOL 50 MG DAILY.
  5. PROCARDIA XL [Suspect]
     Dosage: PROCARDIA XL 90 MG DAILY.
  6. DURAGESIC-100 [Suspect]
     Dosage: DURAGESIC 25 MCG/HR. EVERY 72 HOURS
  7. FIORINAL #3 [Suspect]
     Dosage: FIORINAL # 3 ONE TABLET EVERY 4 HOURS PRN, MAXIMUM 6/DAY
  8. AMOXICILLIN [Concomitant]
     Indication: BRONCHITIS
     Dosage: AMOXICILLIN 500 MG TID FOR BRONCHITIS DIAGNOSED ON CYCLE 1, DAY 4 (C1, D4).
  9. PROMETHAZINE [Concomitant]
     Dosage: PROMETHAZINE 25 MG EVERY 4 HOURS PRN.

REACTIONS (1)
  - DEHYDRATION [None]
